FAERS Safety Report 7967784-7 (Version None)
Quarter: 2011Q4

REPORT INFORMATION
  Report Type: 
  Country: None (occurrence: None)
  Receive Date: 20111207
  Receipt Date: 20111128
  Transmission Date: 20120403
  Serious: Yes (Other)
  Sender: FDA-Public Use
  Company Number: MIN-00817

PATIENT

DRUGS (2)
  1. MINOCYCLINE HCL [Suspect]
     Indication: COGNITIVE DISORDER
     Dosage: 100MG EVERY 12 HOURS, ORALLY
     Route: 048
  2. STABLE ANTIRETROVIRAL REGIMEN (UNSPECIFIED): NI [Concomitant]

REACTIONS (2)
  - COGNITIVE DISORDER [None]
  - CONDITION AGGRAVATED [None]
